FAERS Safety Report 19352367 (Version 1)
Quarter: 2021Q2

REPORT INFORMATION
  Report Type: Spontaneous
  Country: IN (occurrence: IN)
  Receive Date: 20210531
  Receipt Date: 20210531
  Transmission Date: 20210717
  Serious: No
  Sender: FDA-Public Use
  Company Number: IN-LUPIN LIMITED-2021-07935

PATIENT
  Sex: Male

DRUGS (1)
  1. GLUCONORM SR [Suspect]
     Active Substance: METFORMIN HYDROCHLORIDE
     Indication: PRODUCT USED FOR UNKNOWN INDICATION
     Dosage: 500 MILLIGRAM
     Route: 048
     Dates: start: 202105

REACTIONS (3)
  - Product taste abnormal [Unknown]
  - No adverse event [Unknown]
  - Poor quality product administered [Unknown]

NARRATIVE: CASE EVENT DATE: 202105
